FAERS Safety Report 9915635 (Version 2)
Quarter: 2014Q1

REPORT INFORMATION
  Report Type: Spontaneous
  Country: US (occurrence: US)
  Receive Date: 20140221
  Receipt Date: 20140308
  Transmission Date: 20141002
  Serious: Yes (Other)
  Sender: FDA-Public Use
  Company Number: US-ROCHE-1350545

PATIENT
  Age: 45 Year
  Sex: Female

DRUGS (1)
  1. XOLAIR [Suspect]
     Indication: ASTHMA
     Route: 058
     Dates: start: 20140131

REACTIONS (4)
  - Flushing [Unknown]
  - Dyspnoea [Unknown]
  - Urticaria [Unknown]
  - Hypoaesthesia oral [Unknown]
